FAERS Safety Report 6996952-6 (Version None)
Quarter: 2010Q3

REPORT INFORMATION
  Report Type: 
  Country: None (occurrence: None)
  Receive Date: 20100918
  Receipt Date: 20090831
  Transmission Date: 20110219
  Serious: No
  Sender: FDA-Public Use
  Company Number: US-WYE-H10430609

PATIENT
  Sex: Female
  Weight: 48.12 kg

DRUGS (17)
  1. PRISTIQ [Suspect]
     Indication: DEPRESSION
     Route: 048
     Dates: start: 20090401, end: 20090701
  2. PRISTIQ [Suspect]
     Dosage: WEANED OFF OVER 2 WEEKS
     Route: 048
     Dates: start: 20090701, end: 20090701
  3. SYNTHROID [Concomitant]
  4. VALIUM [Concomitant]
  5. BENADRYL [Concomitant]
  6. HYDROCODONE [Concomitant]
  7. CELEBREX [Concomitant]
  8. PROTONIX [Concomitant]
  9. AMBIEN [Concomitant]
  10. ASPIRIN [Concomitant]
  11. SOMA [Concomitant]
  12. CYANOCOBALAMIN [Concomitant]
  13. IRON [Concomitant]
  14. ASCORBIC ACID [Concomitant]
  15. VITAMIN D [Concomitant]
  16. POTASSIUM [Concomitant]
  17. ISOSORBIDE DINITRATE [Concomitant]

REACTIONS (14)
  - CONDITION AGGRAVATED [None]
  - DECREASED APPETITE [None]
  - DRUG WITHDRAWAL SYNDROME [None]
  - DYSKINESIA [None]
  - FACIAL BONES FRACTURE [None]
  - FALL [None]
  - GAIT DISTURBANCE [None]
  - HYPOTONIA [None]
  - INTENTIONAL DRUG MISUSE [None]
  - MIGRAINE [None]
  - MUSCLE SPASMS [None]
  - TREMOR [None]
  - WEIGHT DECREASED [None]
  - WEIGHT INCREASED [None]
